FAERS Safety Report 20851383 (Version 1)
Quarter: 2022Q2

REPORT INFORMATION
  Report Type: Spontaneous
  Country: RU (occurrence: RU)
  Receive Date: 20220519
  Receipt Date: 20220519
  Transmission Date: 20220720
  Serious: Yes (Hospitalization, Other)
  Sender: FDA-Public Use
  Company Number: RU-BEH-2022145409

PATIENT
  Age: 2 Year
  Sex: Female

DRUGS (3)
  1. PRIVIGEN [Suspect]
     Active Substance: HUMAN IMMUNOGLOBULIN G
     Indication: Kawasaki^s disease
     Dosage: 25 GRAM, TOT
     Route: 042
     Dates: start: 20200208, end: 20200209
  2. IBUPROFEN [Concomitant]
     Active Substance: IBUPROFEN
     Indication: Kawasaki^s disease
     Dosage: 6 MILLILITER
     Route: 048
     Dates: start: 20200207, end: 20200210
  3. ASPIRIN [Concomitant]
     Active Substance: ASPIRIN
     Indication: Kawasaki^s disease
     Dosage: 60 MILLIGRAM
     Route: 048
     Dates: start: 20200208

REACTIONS (5)
  - Meningism [Recovering/Resolving]
  - Headache [Recovering/Resolving]
  - Vomiting [Recovering/Resolving]
  - Screaming [Recovering/Resolving]
  - Anxiety [Recovering/Resolving]

NARRATIVE: CASE EVENT DATE: 20200209
